FAERS Safety Report 5583259-7 (Version None)
Quarter: 2008Q1

REPORT INFORMATION
  Report Type: 
  Country: None (occurrence: None)
  Receive Date: 20080107
  Receipt Date: 20071228
  Transmission Date: 20080703
  Serious: Yes (Other)
  Sender: FDA-Public Use
  Company Number: US-ELI_LILLY_AND_COMPANY-US200711001850

PATIENT
  Age: 42 Year
  Sex: Female

DRUGS (4)
  1. PROZAC [Suspect]
     Indication: DEPRESSION
     Dosage: 20 MG, 2/D
     Dates: start: 19960101, end: 19980101
  2. WELLBATRIN [Concomitant]
     Dosage: 300 MG, DAILY (1/D)
  3. METHADONE HCL [Concomitant]
     Indication: SPINAL CORD INJURY
     Dosage: 50 MG, UNK
  4. XANAX [Concomitant]
     Indication: ANXIETY

REACTIONS (7)
  - ANOREXIA [None]
  - DEPRESSION [None]
  - DRUG INEFFECTIVE [None]
  - NEUROPATHY PERIPHERAL [None]
  - OBSESSIVE-COMPULSIVE DISORDER [None]
  - SPINAL CORD INJURY [None]
  - WEIGHT DECREASED [None]
